FAERS Safety Report 9727497 (Version 1)
Quarter: 2013Q4

REPORT INFORMATION
  Report Type: Spontaneous
  Country: FR (occurrence: None)
  Receive Date: 20131127
  Receipt Date: 20131127
  Transmission Date: 20140711
  Serious: Yes (Hospitalization)
  Sender: FDA-Public Use
  Company Number: DSM-2013-01021

PATIENT
  Age: 67 Year
  Sex: Female
  Weight: 86 kg

DRUGS (8)
  1. OLMETEC [Suspect]
     Indication: CARDIAC FAILURE
     Dosage: 80 MG (40 MG, 2 IN 1 D), ORAL
     Route: 048
  2. GLUCOPHAGE (METFORMIN) (METFORMIN) [Concomitant]
  3. KARDEGIC (ACETYLSALICYLATE LYSINE) (ACETYLSALICYLATE LYSINE) [Concomitant]
  4. LASILIX (FUROSEMIDE) (FUROSEMIDE) [Concomitant]
  5. BISCOE (BISOPROLOL) (BISOPROLOL) [Concomitant]
  6. AMLOR (AMLODIPINE BESILATE) (AMLODIPINE BESILATE) [Concomitant]
  7. CRESTOR (ROSUVASTATIN) (ROSUVASTATIN) [Concomitant]
  8. INSULATARD (INSULIN INJECTION, ISOPHANE) (INSULIN INJECTION, ISOPHANE) [Concomitant]

REACTIONS (2)
  - Overdose [None]
  - Off label use [None]
